FAERS Safety Report 4814864-0 (Version None)
Quarter: 2005Q4

REPORT INFORMATION
  Report Type: 
  Country: None (occurrence: None)
  Receive Date: 20051028
  Receipt Date: 20051017
  Transmission Date: 20060501
  Serious: Yes (Other)
  Sender: FDA-Public Use
  Company Number: BR-ROCHE-421740

PATIENT
  Age: 27 Year
  Sex: Male

DRUGS (2)
  1. ROACUTAN [Suspect]
     Indication: ACNE
     Route: 048
     Dates: start: 20050615, end: 20051015
  2. ISOTRETINOIN (NON-ROCHE) [Concomitant]
     Indication: ACNE
     Route: 048
     Dates: start: 20051015

REACTIONS (6)
  - ABDOMINAL PAIN [None]
  - DIARRHOEA [None]
  - GASTROINTESTINAL INFECTION [None]
  - LARGE INTESTINAL HAEMORRHAGE [None]
  - PEPTIC ULCER [None]
  - VOMITING [None]
